FAERS Safety Report 9419092 (Version 4)
Quarter: 2014Q1

REPORT INFORMATION
  Report Type: Report from Study
  Country: US (occurrence: US)
  Receive Date: 20130725
  Receipt Date: 20140212
  Transmission Date: 20141002
  Serious: Yes (Hospitalization, Other)
  Sender: FDA-Public Use
  Company Number: US-NAPPMUNDI-USA-2013-0104756

PATIENT
  Age: 58 Year
  Sex: Male

DRUGS (2)
  1. OXYCONTIN (NDA 22-272) [Suspect]
     Indication: SPINAL COLUMN STENOSIS
     Dosage: 40 MG, Q12H
     Route: 048
  2. OXYCONTIN (NDA 22-272) [Suspect]
     Indication: BACK INJURY
     Dosage: 40 MG, Q12H
     Route: 048

REACTIONS (5)
  - Adenocarcinoma [Unknown]
  - Oesophageal carcinoma [Unknown]
  - Oesophageal mass [Unknown]
  - Dysphagia [Unknown]
  - Regurgitation [Not Recovered/Not Resolved]
